FAERS Safety Report 21634987 (Version 1)
Quarter: 2022Q4

REPORT INFORMATION
  Report Type: Spontaneous
  Country: US (occurrence: None)
  Receive Date: 20221122
  Receipt Date: 20221122
  Transmission Date: 20230112
  Serious: No
  Sender: FDA-Public Use
  Company Number: None

PATIENT
  Sex: Male

DRUGS (1)
  1. EPCLUSA [Suspect]
     Active Substance: SOFOSBUVIR\VELPATASVIR
     Dosage: OTHER QUANTITY : 400-100MG;?FREQUENCY : DAILY;?
     Route: 048

REACTIONS (5)
  - Headache [None]
  - Migraine [None]
  - Pain [None]
  - Arthralgia [None]
  - Pain in extremity [None]
